FAERS Safety Report 15898319 (Version 1)
Quarter: 2019Q1

REPORT INFORMATION
  Report Type: Other
  Country: DE (occurrence: DE)
  Receive Date: 20190201
  Receipt Date: 20190201
  Transmission Date: 20190417
  Serious: Yes (Other)
  Sender: FDA-Public Use
  Company Number: DE-GLENMARK PHARMACEUTICALS-2019GMK039582

PATIENT

DRUGS (1)
  1. OLMESARTAN MEDOXOMIL. [Suspect]
     Active Substance: OLMESARTAN MEDOXOMIL
     Indication: HYPERTENSION
     Dosage: 40 MG, OD (SEVERAL YEARS) (MEHRERE JAHRE)
     Route: 048
     Dates: end: 201812

REACTIONS (6)
  - Gastrointestinal disorder [Recovered/Resolved]
  - Mesenteric artery stenosis [Recovered/Resolved]
  - Mesenteric artery stent insertion [Recovered/Resolved]
  - Large intestinal ulcer [Recovered/Resolved]
  - Weight decreased [Recovered/Resolved]
  - Diarrhoea [Recovered/Resolved]

NARRATIVE: CASE EVENT DATE: 201806
